FAERS Safety Report 6169118-X (Version None)
Quarter: 2009Q2

REPORT INFORMATION
  Report Type: 
  Country: None (occurrence: None)
  Receive Date: 20090427
  Receipt Date: 20090415
  Transmission Date: 20091009
  Serious: Yes (Death, Other)
  Sender: FDA-Public Use
  Company Number: US-PFIZER INC-2009179567

PATIENT
  Sex: Male

DRUGS (2)
  1. ALPRAZOLAM [Suspect]
  2. RESTORIL [Suspect]

REACTIONS (3)
  - CARBOXYHAEMOGLOBIN INCREASED [None]
  - COMPLETED SUICIDE [None]
  - DRUG LEVEL BELOW THERAPEUTIC [None]
